FAERS Safety Report 5079836-2 (Version None)
Quarter: 2006Q3

REPORT INFORMATION
  Report Type: 
  Country: None (occurrence: None)
  Receive Date: 20060720
  Receipt Date: 20051020
  Transmission Date: 20061208
  Serious: Yes (Hospitalization)
  Sender: FDA-Public Use
  Company Number: 2005081114

PATIENT
  Sex: Female

DRUGS (4)
  1. CELEBREX [Suspect]
     Indication: FRACTURE
     Dosage: (200 MG)
  2. FLEXERIL [Concomitant]
  3. DARVOCET-N 100 [Concomitant]
  4. VICODIN ES [Concomitant]

REACTIONS (3)
  - BACTERIAL INFECTION [None]
  - INADEQUATE ANALGESIA [None]
  - MUSCLE SPASMS [None]
